FAERS Safety Report 20856854 (Version 2)
Quarter: 2022Q3

REPORT INFORMATION
  Report Type: Report from Study
  Country: US (occurrence: US)
  Receive Date: 20220520
  Receipt Date: 20220713
  Transmission Date: 20221026
  Serious: No
  Sender: FDA-Public Use
  Company Number: US-SANOFI-01087755

PATIENT
  Age: 53 Year
  Sex: Female

DRUGS (4)
  1. DUPILUMAB [Suspect]
     Active Substance: DUPILUMAB
     Indication: Dermatitis atopic
     Dosage: 600 UNK, TOTAL
     Route: 058
     Dates: start: 20220501, end: 20220501
  2. DUPILUMAB [Suspect]
     Active Substance: DUPILUMAB
     Indication: Asthma
     Dosage: 300 MG, QOW
     Route: 058
     Dates: start: 20220515
  3. MAGNESIUM [Concomitant]
     Active Substance: MAGNESIUM
  4. MACA [LEPIDIUM MEYENII ROOT] [Concomitant]

REACTIONS (10)
  - Injection site haemorrhage [Unknown]
  - Injection site discharge [Unknown]
  - Weight increased [Unknown]
  - Skin discolouration [Unknown]
  - Erythema [Unknown]
  - COVID-19 [Unknown]
  - Injection site rash [Unknown]
  - Rash macular [Unknown]
  - Injection site pain [Unknown]
  - Therapeutic response decreased [Unknown]

NARRATIVE: CASE EVENT DATE: 20220601
